FAERS Safety Report 25763490 (Version 1)
Quarter: 2025Q3

REPORT INFORMATION
  Report Type: Spontaneous
  Country: US (occurrence: US)
  Receive Date: 20250905
  Receipt Date: 20250905
  Transmission Date: 20251021
  Serious: Yes (Hospitalization)
  Sender: BOEHRINGER INGELHEIM
  Company Number: US-BoehringerIngelheim-2025-BI-092853

PATIENT
  Age: 49 Year
  Sex: Female

DRUGS (8)
  1. JARDIANCE [Suspect]
     Active Substance: EMPAGLIFLOZIN
     Indication: Type 2 diabetes mellitus
  2. MOUNJARO [Suspect]
     Active Substance: TIRZEPATIDE
     Indication: Type 2 diabetes mellitus
  3. MOUNJARO [Suspect]
     Active Substance: TIRZEPATIDE
  4. MOUNJARO [Suspect]
     Active Substance: TIRZEPATIDE
  5. MOUNJARO [Suspect]
     Active Substance: TIRZEPATIDE
  6. MOUNJARO [Suspect]
     Active Substance: TIRZEPATIDE
  7. METFORMIN [Concomitant]
     Active Substance: METFORMIN HYDROCHLORIDE
     Indication: Type 2 diabetes mellitus
  8. OZEMPIC [Concomitant]
     Active Substance: SEMAGLUTIDE
     Indication: Type 2 diabetes mellitus

REACTIONS (11)
  - Renal failure [Recovered/Resolved]
  - Weight decreased [Recovered/Resolved]
  - Weight increased [Not Recovered/Not Resolved]
  - Blood glucose increased [Not Recovered/Not Resolved]
  - Blood glucose decreased [Recovered/Resolved]
  - Stress [Not Recovered/Not Resolved]
  - Eye disorder [Not Recovered/Not Resolved]
  - Concussion [Unknown]
  - Head injury [Unknown]
  - Memory impairment [Unknown]
  - Accident at work [Unknown]

NARRATIVE: CASE EVENT DATE: 20230101
